FAERS Safety Report 5307254-8 (Version None)
Quarter: 2007Q2

REPORT INFORMATION
  Report Type: 
  Country: None (occurrence: None)
  Receive Date: 20070425
  Receipt Date: 20070418
  Transmission Date: 20071010
  Serious: Yes (Other)
  Sender: FDA-Public Use
  Company Number: DE-GLAXOSMITHKLINE-B0466585A

PATIENT
  Age: 38 Year
  Sex: Female
  Weight: 58 kg

DRUGS (2)
  1. ROPINIROLE HCL [Suspect]
     Indication: RESTLESS LEGS SYNDROME
     Route: 048
     Dates: start: 20061004, end: 20061220
  2. NESIVINE SPRAY [Concomitant]
     Indication: RHINITIS
     Dosage: .5MG PER DAY
     Route: 045
     Dates: start: 20061031, end: 20061031

REACTIONS (2)
  - ABORTION MISSED [None]
  - ABORTION SPONTANEOUS [None]
